FAERS Safety Report 22151781 (Version 1)
Quarter: 2023Q1

REPORT INFORMATION
  Report Type: Spontaneous
  Country: KR (occurrence: US)
  Receive Date: 20230329
  Receipt Date: 20230329
  Transmission Date: 20230417
  Serious: Yes (Hospitalization)
  Sender: FDA-Public Use
  Company Number: KR-BAYER-2023A036663

PATIENT
  Age: 68 Year
  Sex: Male
  Weight: 78.7 kg

DRUGS (2)
  1. ASPIRIN [Suspect]
     Active Substance: ASPIRIN
     Indication: Dizziness
     Dosage: 100 MG, QD
     Route: 048
     Dates: start: 20210528, end: 20210608
  2. LIPIWON [Concomitant]
     Indication: Hyperlipidaemia
     Dosage: UNK
     Dates: start: 20210220

REACTIONS (5)
  - Cystitis radiation [None]
  - Haematuria [None]
  - Dysuria [None]
  - Haemorrhage urinary tract [None]
  - Off label use [Recovered/Resolved]

NARRATIVE: CASE EVENT DATE: 20210528
